FAERS Safety Report 11624431 (Version 1)
Quarter: 2015Q4

REPORT INFORMATION
  Report Type: Spontaneous
  Country: US (occurrence: US)
  Receive Date: 20151013
  Receipt Date: 20151013
  Transmission Date: 20160304
  Serious: Yes (Hospitalization)
  Sender: FDA-Public Use
  Company Number: US-ROCHE-1616059

PATIENT
  Sex: Female

DRUGS (2)
  1. NUTROPIN AQ [Suspect]
     Active Substance: SOMATROPIN
     Indication: GROWTH RETARDATION
     Route: 058
     Dates: start: 20150610
  2. NUTROPIN AQ [Suspect]
     Active Substance: SOMATROPIN
     Indication: DWARFISM
     Route: 058
     Dates: start: 20150604

REACTIONS (6)
  - Urinary tract infection [Unknown]
  - Respiratory tract infection [Unknown]
  - Arthralgia [Not Recovered/Not Resolved]
  - Asthma [Unknown]
  - Diverticulitis [Unknown]
  - Injection site haemorrhage [Not Recovered/Not Resolved]
